FAERS Safety Report 6194604-6 (Version None)
Quarter: 2009Q2

REPORT INFORMATION
  Report Type: 
  Country: None (occurrence: None)
  Receive Date: 20090519
  Receipt Date: 20090511
  Transmission Date: 20091009
  Serious: Yes (Hospitalization)
  Sender: FDA-Public Use
  Company Number: PHHO2005US03597

PATIENT
  Sex: Male
  Weight: 88.6 kg

DRUGS (2)
  1. CIBADREX T29368+ [Suspect]
     Indication: HYPERTENSION
     Dosage: LEVEL 1
     Route: 048
     Dates: start: 20041222, end: 20050124
  2. CIBADREX T29368+ [Suspect]
     Dosage: LEVEL 2
     Route: 048
     Dates: start: 20050125

REACTIONS (7)
  - ASTHENIA [None]
  - COLD SWEAT [None]
  - DIZZINESS [None]
  - HYPERHIDROSIS [None]
  - HYPOTENSION [None]
  - SYNCOPE [None]
  - TREMOR [None]
